FAERS Safety Report 5112793-9 (Version None)
Quarter: 2006Q3

REPORT INFORMATION
  Report Type: 
  Country: None (occurrence: None)
  Receive Date: 20060731
  Receipt Date: 20060628
  Transmission Date: 20061208
  Serious: No
  Sender: FDA-Public Use
  Company Number: 2006PV016635

PATIENT
  Age: 59 Year
  Sex: Male
  Weight: 99.7913 kg

DRUGS (2)
  1. BYETTA [Suspect]
     Indication: DIABETES MELLITUS NON-INSULIN-DEPENDENT
     Dosage: 10 MCG; TID; SC
     Route: 058
     Dates: start: 20060101
  2. GLUCOPHAGE [Concomitant]

REACTIONS (5)
  - ANOREXIA [None]
  - BLOOD CHOLESTEROL DECREASED [None]
  - MEDICATION ERROR [None]
  - NAUSEA [None]
  - WEIGHT DECREASED [None]
